FAERS Safety Report 9485589 (Version 3)
Quarter: 2013Q4

REPORT INFORMATION
  Report Type: Report from Study
  Country: US (occurrence: US)
  Receive Date: 20130829
  Receipt Date: 20131213
  Transmission Date: 20140711
  Serious: Yes (Hospitalization)
  Sender: FDA-Public Use
  Company Number: US-ROCHE-1266828

PATIENT
  Sex: Male

DRUGS (1)
  1. NUTROPIN [Suspect]
     Indication: GROWTH HORMONE DEFICIENCY
     Route: 058
     Dates: end: 201210

REACTIONS (6)
  - Viral infection [Recovered/Resolved]
  - Cerebral palsy [Unknown]
  - Injection site pain [Recovered/Resolved]
  - Muscle contracture [Recovered/Resolved]
  - Chromaturia [Unknown]
  - Muscle tightness [Recovered/Resolved]
